FAERS Safety Report 14900676 (Version 14)
Quarter: 2025Q4

REPORT INFORMATION
  Report Type: Report from Study
  Country: US (occurrence: US)
  Receive Date: 20180516
  Receipt Date: 20251224
  Transmission Date: 20260117
  Serious: No
  Sender: PFIZER
  Company Number: US-PFIZER INC-2018198665

PATIENT
  Age: 60 Year
  Sex: Female
  Weight: 54.43 kg

DRUGS (5)
  1. XELJANZ XR [Suspect]
     Active Substance: TOFACITINIB CITRATE
     Indication: Rheumatoid arthritis
     Dosage: 11 MG, 1X/DAY (ONCE DAILY)
     Route: 048
  2. XELJANZ XR [Suspect]
     Active Substance: TOFACITINIB CITRATE
     Dosage: 11 MG, 1X/DAY (ONCE DAILY)
     Route: 048
  3. XELJANZ XR [Suspect]
     Active Substance: TOFACITINIB CITRATE
     Dosage: 11 MG, 1X/DAY
     Route: 048
  4. NORTRIPTYLINE [Concomitant]
     Active Substance: NORTRIPTYLINE
     Indication: Insomnia
     Dosage: UNK
  5. CALCIUM [Concomitant]
     Active Substance: CALCIUM
     Dosage: UNK

REACTIONS (11)
  - Purulent discharge [Unknown]
  - Heart rate increased [Recovering/Resolving]
  - Cardiac disorder [Unknown]
  - Hand deformity [Unknown]
  - Blood cholesterol increased [Recovered/Resolved]
  - Influenza [Unknown]
  - Condition aggravated [Unknown]
  - Feeling abnormal [Unknown]
  - Conjunctivitis [Unknown]
  - Eye disorder [Unknown]
  - Abdominal pain upper [Unknown]
